FAERS Safety Report 14825090 (Version 3)
Quarter: 2018Q3

REPORT INFORMATION
  Report Type: Report from Study
  Country: GB (occurrence: GB)
  Receive Date: 20180430
  Receipt Date: 20180719
  Transmission Date: 20181010
  Serious: Yes (Hospitalization, Other)
  Sender: FDA-Public Use
  Company Number: GB-ROCHE-1905928

PATIENT
  Age: 72 Year
  Sex: Male

DRUGS (1)
  1. ESBRIET [Suspect]
     Active Substance: PIRFENIDONE
     Indication: IDIOPATHIC PULMONARY FIBROSIS
     Dosage: 801 MG
     Route: 048
     Dates: start: 20150330, end: 20170817

REACTIONS (17)
  - Fatigue [Unknown]
  - Hypotension [Unknown]
  - Lower respiratory tract infection [Recovering/Resolving]
  - Blister [Not Recovered/Not Resolved]
  - Pneumonia [Recovering/Resolving]
  - Weight decreased [Recovering/Resolving]
  - Hyperhidrosis [Unknown]
  - Angina pectoris [Unknown]
  - Lethargy [Unknown]
  - Cough [Recovering/Resolving]
  - Asthenia [Not Recovered/Not Resolved]
  - Constipation [Recovered/Resolved]
  - Decreased appetite [Not Recovered/Not Resolved]
  - Productive cough [Not Recovered/Not Resolved]
  - Sputum discoloured [Not Recovered/Not Resolved]
  - Weight increased [Not Recovered/Not Resolved]
  - Blood cholesterol decreased [Unknown]

NARRATIVE: CASE EVENT DATE: 201603
